FAERS Safety Report 6682374-4 (Version None)
Quarter: 2010Q2

REPORT INFORMATION
  Report Type: 
  Country: None (occurrence: None)
  Receive Date: 20100415
  Receipt Date: 20100404
  Transmission Date: 20101027
  Serious: Yes (Other)
  Sender: FDA-Public Use
  Company Number: US-PFIZER INC-2010042988

PATIENT
  Sex: Female
  Weight: 68.027 kg

DRUGS (3)
  1. CHANTIX [Suspect]
     Indication: SMOKING CESSATION THERAPY
     Dosage: UNK
     Dates: start: 20090101, end: 20090101
  2. CHANTIX [Suspect]
     Dosage: UNK
     Dates: start: 20100301
  3. ATIVAN [Concomitant]
     Indication: PANIC ATTACK
     Dosage: UNK

REACTIONS (4)
  - BACK INJURY [None]
  - DEPRESSION [None]
  - IMPAIRED WORK ABILITY [None]
  - NERVOUSNESS [None]
